FAERS Safety Report 9425302 (Version 1)
Quarter: 2013Q3

REPORT INFORMATION
  Report Type: Spontaneous
  Country: GB (occurrence: GB)
  Receive Date: 20130729
  Receipt Date: 20130729
  Transmission Date: 20140515
  Serious: Yes (Disabling)
  Sender: FDA-Public Use
  Company Number: PHHY2013GB077607

PATIENT
  Age: 31 Year
  Sex: Male
  Weight: 85.7 kg

DRUGS (2)
  1. DOXYCYCLINE [Suspect]
     Indication: TESTICULAR PAIN
     Dosage: 100 MG, QDDAILY TWO WEEKS THEN 100 MG TWICE DAILY
     Route: 048
     Dates: start: 20130404
  2. DOXYCYCLINE [Suspect]
     Dosage: 100 MG, BID  DAILY TWO WEEKS THEN 100 MG TWICE DAILY
     Route: 048
     Dates: end: 20130511

REACTIONS (1)
  - Anxiety [Not Recovered/Not Resolved]
